FAERS Safety Report 4754773-9 (Version None)
Quarter: 2005Q3

REPORT INFORMATION
  Report Type: 
  Country: None (occurrence: None)
  Receive Date: 20050825
  Receipt Date: 20050815
  Transmission Date: 20060218
  Serious: Yes (Other)
  Sender: FDA-Public Use
  Company Number: 2005112829

PATIENT
  Age: 76 Year
  Sex: Female
  Weight: 91.6 kg

DRUGS (11)
  1. AMLODIPINE [Suspect]
     Indication: ESSENTIAL HYPERTENSION
     Dosage: DAILY, ORAL
     Route: 048
     Dates: start: 20050617, end: 20050714
  2. ENALAPRIL MALEATE [Concomitant]
  3. ASPIRIN [Concomitant]
  4. ATORVASTATIN CALCIUM [Concomitant]
  5. LOSARTAN POTASSIUM [Concomitant]
  6. ATENOLOL [Concomitant]
  7. PARACETAMOL (PARACETAMOL) [Concomitant]
  8. BENDROFLUMETHIAZIDE  (BENDROFLUMETHIAZIDE) [Concomitant]
  9. UNILET COMFORTOUCH (ALL OTHER THERAPEUTIC PRODUCTS) [Concomitant]
  10. MEDISENSE OPTIUM PLUS (ALL OTHER NON-THERAPEUTIC PRODUCTS) [Concomitant]
  11. AQUEOUS (ALL OTHER THERAPEUTIC PRODUCTS) [Concomitant]

REACTIONS (9)
  - ARTHRALGIA [None]
  - BACK PAIN [None]
  - COUGH [None]
  - DIABETES MELLITUS INADEQUATE CONTROL [None]
  - DRY MOUTH [None]
  - DYSPNOEA [None]
  - MUSCLE SPASMS [None]
  - RHINORRHOEA [None]
  - SNEEZING [None]
